FAERS Safety Report 25024563 (Version 2)
Quarter: 2025Q3

REPORT INFORMATION
  Report Type: Spontaneous
  Country: US (occurrence: US)
  Receive Date: 20250228
  Receipt Date: 20250702
  Transmission Date: 20251021
  Serious: Yes (Hospitalization, Other)
  Sender: ELI LILLY AND COMPANY
  Company Number: US-ELI_LILLY_AND_COMPANY-US202502013049

PATIENT
  Age: 30 Year
  Sex: Female
  Weight: 160 kg

DRUGS (25)
  1. TRULICITY [Suspect]
     Active Substance: DULAGLUTIDE
     Indication: Type 2 diabetes mellitus
     Dosage: 0.75 MG, WEEKLY (1/W)
     Route: 065
     Dates: start: 20230505, end: 20230622
  2. OZEMPIC [Suspect]
     Active Substance: SEMAGLUTIDE
     Indication: Type 2 diabetes mellitus
     Dosage: 0.25 MG, WEEKLY (1/W)
     Route: 065
     Dates: start: 20221102, end: 20221130
  3. OZEMPIC [Suspect]
     Active Substance: SEMAGLUTIDE
     Dosage: 0.5 MG, WEEKLY (1/W)
     Route: 065
     Dates: start: 20221201, end: 20230131
  4. RYBELSUS [Suspect]
     Active Substance: SEMAGLUTIDE
     Indication: Type 2 diabetes mellitus
     Route: 065
     Dates: start: 20211227, end: 20220516
  5. RYBELSUS [Suspect]
     Active Substance: SEMAGLUTIDE
     Route: 065
     Dates: start: 20220520, end: 20221027
  6. VICTOZA [Suspect]
     Active Substance: LIRAGLUTIDE
     Indication: Type 2 diabetes mellitus
     Dosage: 1.2 MG, DAILY
     Route: 065
     Dates: start: 20230626, end: 20230927
  7. VICTOZA [Suspect]
     Active Substance: LIRAGLUTIDE
     Indication: Weight control
  8. METFORMIN HYDROCHLORIDE [Concomitant]
     Active Substance: METFORMIN HYDROCHLORIDE
     Indication: Type 2 diabetes mellitus
  9. IBUPROFEN [Concomitant]
     Active Substance: IBUPROFEN
     Indication: Pain
     Dates: start: 20220119, end: 20220219
  10. UBRELVY [Concomitant]
     Active Substance: UBROGEPANT
     Indication: Migraine
     Dates: start: 20220201, end: 20220301
  11. ESOMEPRAZOLE [Concomitant]
     Active Substance: ESOMEPRAZOLE
     Indication: Gastrooesophageal reflux disease
     Dates: start: 20220328, end: 20220428
  12. OXYBUTYNIN CHLORIDE [Concomitant]
     Active Substance: OXYBUTYNIN CHLORIDE
     Indication: Product used for unknown indication
     Dates: start: 20220416, end: 20220820
  13. PREGABALIN [Concomitant]
     Active Substance: PREGABALIN
     Indication: Fibromyalgia
     Dates: start: 20220520, end: 20220620
  14. CHOLECALCIFEROL [Concomitant]
     Active Substance: CHOLECALCIFEROL
     Indication: Vitamin D decreased
     Dates: start: 20220422, end: 20220522
  15. KRISTALOSE [Concomitant]
     Active Substance: LACTULOSE
     Indication: Constipation
     Dates: start: 20220628, end: 20220723
  16. SUCRALFATE [Concomitant]
     Active Substance: SUCRALFATE
     Indication: Gastrooesophageal reflux disease
     Dates: start: 20230110, end: 20230210
  17. METOCLOPRAMIDE [Concomitant]
     Active Substance: METOCLOPRAMIDE
     Indication: Nausea
  18. METOCLOPRAMIDE [Concomitant]
     Active Substance: METOCLOPRAMIDE
     Indication: Vomiting
  19. IBSRELA [Concomitant]
     Active Substance: TENAPANOR HYDROCHLORIDE
     Indication: Constipation
     Dates: start: 20230204, end: 20230304
  20. MONTELUKAST [Concomitant]
     Active Substance: MONTELUKAST
     Indication: Asthma
     Dates: start: 20230503, end: 20230803
  21. CHOLESTYRAMINE [Concomitant]
     Active Substance: CHOLESTYRAMINE
     Indication: Product used for unknown indication
  22. LEVOTHYROXINE [Concomitant]
     Active Substance: LEVOTHYROXINE
     Indication: Hypothyroidism
     Dates: start: 20220101
  23. PHENTERMINE [Concomitant]
     Active Substance: PHENTERMINE
     Indication: Weight decreased
  24. TOPIRAMATE [Concomitant]
     Active Substance: TOPIRAMATE
     Indication: Weight decreased
  25. ALBUTEROL SULFATE [Concomitant]
     Active Substance: ALBUTEROL SULFATE
     Indication: Asthma

REACTIONS (16)
  - Functional gastrointestinal disorder [Unknown]
  - Early satiety [Unknown]
  - Abdominal distension [Unknown]
  - Constipation [Not Recovered/Not Resolved]
  - Impaired gastric emptying [Unknown]
  - Dyspepsia [Unknown]
  - Cholecystitis acute [Unknown]
  - Abdominal pain upper [Not Recovered/Not Resolved]
  - Abdominal pain [Unknown]
  - Nausea [Not Recovered/Not Resolved]
  - Vomiting [Not Recovered/Not Resolved]
  - Diarrhoea [Recovered/Resolved]
  - Cholelithiasis [Recovered/Resolved]
  - Cholecystitis [Recovered/Resolved]
  - Hypokalaemia [Recovered/Resolved]
  - Dysphagia [Not Recovered/Not Resolved]

NARRATIVE: CASE EVENT DATE: 20220110
